FAERS Safety Report 20981637 (Version 2)
Quarter: 2024Q2

REPORT INFORMATION
  Report Type: Spontaneous
  Country: US (occurrence: US)
  Receive Date: 20220620
  Receipt Date: 20240610
  Transmission Date: 20240716
  Serious: Yes (Hospitalization, Other)
  Sender: FDA-Public Use
  Company Number: US-GLAXOSMITHKLINE-US2022GSK092223

PATIENT

DRUGS (13)
  1. ATOVAQUONE [Suspect]
     Active Substance: ATOVAQUONE
     Indication: Babesiosis
     Dosage: 750 MG, BID
     Dates: start: 202105
  2. ATOVAQUONE [Suspect]
     Active Substance: ATOVAQUONE
     Dosage: 1250 MG
  3. ATOVAQUONE\PROGUANIL HYDROCHLORIDE [Suspect]
     Active Substance: ATOVAQUONE\PROGUANIL HYDROCHLORIDE
     Indication: Babesiosis
     Dosage: QD 1000/400 MG DAILY
  4. ATOVAQUONE\PROGUANIL HYDROCHLORIDE [Suspect]
     Active Substance: ATOVAQUONE\PROGUANIL HYDROCHLORIDE
     Dosage: QD 500/200 MG
  5. CLINDAMYCIN [Suspect]
     Active Substance: CLINDAMYCIN
     Indication: Babesiosis
     Dosage: 600 MG, TID
  6. CLINDAMYCIN [Suspect]
     Active Substance: CLINDAMYCIN
     Dosage: 300 MG, TID LOW-DOSE
  7. TAFENOQUINE [Suspect]
     Active Substance: TAFENOQUINE
     Indication: Babesiosis
     Dosage: 300 MG ON DAY 256
  8. TAFENOQUINE [Suspect]
     Active Substance: TAFENOQUINE
     Dosage: 150 MG ON DAYS 257 AND 258
  9. QUININE SULFATE [Suspect]
     Active Substance: QUININE SULFATE
     Indication: Babesiosis
     Dosage: 648 MG, TID
  10. AZITHROMYCIN [Suspect]
     Active Substance: AZITHROMYCIN
     Indication: Babesiosis
     Dosage: 500 MG, 1D
     Dates: start: 202105
  11. AZITHROMYCIN [Suspect]
     Active Substance: AZITHROMYCIN
     Dosage: 1000 MG, 1D HIGH-DOSE
  12. RITUXIMAB [Concomitant]
     Active Substance: RITUXIMAB
     Indication: Monoclonal B-cell lymphocytosis
     Dosage: UNK
     Dates: start: 202012
  13. BENDAMUSTINE [Concomitant]
     Active Substance: BENDAMUSTINE
     Indication: Monoclonal B-cell lymphocytosis
     Dosage: UNK
     Dates: start: 202012

REACTIONS (13)
  - Pathogen resistance [Unknown]
  - Abdominal discomfort [Recovered/Resolved]
  - Nausea [Recovered/Resolved]
  - Vomiting [Recovered/Resolved]
  - Deafness [Recovered/Resolved]
  - Dyspnoea exertional [Recovered/Resolved]
  - Fatigue [Recovered/Resolved]
  - Decreased appetite [Recovered/Resolved]
  - Diarrhoea [Recovered/Resolved]
  - Gastroenteritis [Unknown]
  - Drug resistance [Unknown]
  - Off label use [Unknown]
  - Drug effective for unapproved indication [Unknown]
